FAERS Safety Report 15380615 (Version 1)
Quarter: 2018Q3

REPORT INFORMATION
  Report Type: Spontaneous
  Country: US (occurrence: US)
  Receive Date: 20180913
  Receipt Date: 20180913
  Transmission Date: 20181010
  Serious: Yes (Other)
  Sender: FDA-Public Use
  Company Number: US-ASTELLAS-2017US053113

PATIENT
  Age: 87 Year
  Sex: Male

DRUGS (2)
  1. XTANDI [Suspect]
     Active Substance: ENZALUTAMIDE
     Indication: PROSTATE CANCER METASTATIC
     Route: 065
     Dates: start: 201710
  2. XTANDI [Suspect]
     Active Substance: ENZALUTAMIDE
     Route: 065
     Dates: start: 201711

REACTIONS (6)
  - Tremor [Unknown]
  - Headache [Unknown]
  - Treatment noncompliance [Unknown]
  - Dizziness [Unknown]
  - Fall [Unknown]
  - Dysgraphia [Unknown]

NARRATIVE: CASE EVENT DATE: 20171206
